FAERS Safety Report 12109117 (Version 2)
Quarter: 2016Q1

REPORT INFORMATION
  Report Type: Report from Study
  Country: US (occurrence: US)
  Receive Date: 20160224
  Receipt Date: 20160301
  Transmission Date: 20160526
  Serious: No
  Sender: FDA-Public Use
  Company Number: PHEH2016US004273

PATIENT
  Age: 25 Year
  Sex: Female
  Weight: 113.38 kg

DRUGS (1)
  1. GILENYA [Suspect]
     Active Substance: FINGOLIMOD HYDROCHLORIDE
     Indication: MULTIPLE SCLEROSIS
     Dosage: 0.5 MG, QD
     Route: 048
     Dates: start: 20160219

REACTIONS (8)
  - Heart rate increased [Unknown]
  - Chest pain [Unknown]
  - Headache [Unknown]
  - Feeling abnormal [Unknown]
  - Dyspnoea [Unknown]
  - Amnesia [Unknown]
  - Balance disorder [Unknown]
  - Malaise [Unknown]

NARRATIVE: CASE EVENT DATE: 20160221
